FAERS Safety Report 13696049 (Version 1)
Quarter: 2017Q2

REPORT INFORMATION
  Report Type: Spontaneous
  Country: CA (occurrence: CA)
  Receive Date: 20170628
  Receipt Date: 20170628
  Transmission Date: 20170830
  Serious: Yes (Other)
  Sender: FDA-Public Use
  Company Number: CA-ORION CORPORATION ORION PHARMA-TREX2017-0874

PATIENT
  Age: 36 Year
  Sex: Female
  Weight: 96.8 kg

DRUGS (5)
  1. FOLIC ACID. [Concomitant]
     Active Substance: FOLIC ACID
     Dosage: STRENGTH: 500/20 MG
     Route: 065
     Dates: start: 201603
  2. INFLECTRA [Suspect]
     Active Substance: INFLIXIMAB-DYYB
     Indication: PSORIATIC ARTHROPATHY
     Dosage: CYCLIC (EVERY 0, 2, 6 WEEKS, THEN EVERY 8 WEEKS FOR 12 MONTHS)
     Route: 042
     Dates: start: 20170314
  3. VIMOVO [Concomitant]
     Active Substance: ESOMEPRAZOLE MAGNESIUM\NAPROXEN
     Route: 065
     Dates: start: 201603
  4. SULFASALAZINE. [Suspect]
     Active Substance: SULFASALAZINE
     Route: 065
     Dates: start: 201607
  5. METHOTREXATE (TRADE NAME UNKNOWN) [Suspect]
     Active Substance: METHOTREXATE
     Route: 065
     Dates: start: 201603

REACTIONS (2)
  - Blood pressure fluctuation [Recovered/Resolved]
  - Pneumonia [Unknown]
